FAERS Safety Report 10618982 (Version 2)
Quarter: 2015Q1

REPORT INFORMATION
  Report Type: Spontaneous
  Country: JP (occurrence: None)
  Receive Date: 20141126
  Receipt Date: 20150203
  Transmission Date: 20150720
  Serious: Yes (Other)
  Sender: FDA-Public Use
  Company Number: 201411000476

PATIENT
  Age: 3 Day
  Sex: Female
  Weight: .5 kg

DRUGS (12)
  1. NITRIC OXIDE. [Suspect]
     Active Substance: NITRIC OXIDE
     Indication: RESPIRATORY FAILURE
     Route: 055
     Dates: start: 20130501, end: 20130508
  2. INDACIN /00003801/ (INDOMETACIN) [Concomitant]
  3. FENTANYL (FENTANYL) [Concomitant]
     Active Substance: FENTANYL
  4. GLUCOSE (GLUCOSE) [Concomitant]
  5. DORMICUM /00634101/ (MIDAZOLAM) [Concomitant]
  6. NITRIC OXIDE. [Suspect]
     Active Substance: NITRIC OXIDE
     Indication: PERSISTENT FOETAL CIRCULATION
     Route: 055
     Dates: start: 20130501, end: 20130508
  7. INSULIN (INSULIN) [Concomitant]
     Active Substance: INSULIN NOS
  8. NOBELBAR (PHENOBARBITAL SODIUM) [Concomitant]
  9. BLOOD TRANSFUSION, AUXILIARY PRODUCTS [Concomitant]
     Active Substance: WHOLE BLOOD
  10. NITRIC OXIDE. [Suspect]
     Active Substance: NITRIC OXIDE
     Indication: PULMONARY HYPERTENSION
     Route: 055
     Dates: start: 20130501, end: 20130508
  11. INOVAN /00360702/ (DOPAMINE HYDROCHLORIDE) [Concomitant]
  12. DOBUTAMINE (DOBUTAMINE) [Concomitant]

REACTIONS (2)
  - Pulmonary haemorrhage [None]
  - Intraventricular haemorrhage [None]

NARRATIVE: CASE EVENT DATE: 20130504
